FAERS Safety Report 5441756-9 (Version None)
Quarter: 2007Q3

REPORT INFORMATION
  Report Type: 
  Country: None (occurrence: None)
  Receive Date: 20070829
  Receipt Date: 20070829
  Transmission Date: 20080115
  Serious: Yes (Hospitalization)
  Sender: FDA-Public Use
  Company Number: None

PATIENT
  Age: 62 Year
  Sex: Male

DRUGS (3)
  1. CLONAZEPAM [Suspect]
     Indication: ANXIETY
     Dosage: 0.5MG PO
     Route: 048
     Dates: start: 20070810, end: 20070820
  2. CLONAZEPAM [Suspect]
     Indication: SCHIZOPHRENIA
     Dosage: 0.5MG PO
     Route: 048
     Dates: start: 20070810, end: 20070820
  3. TRIFLUOPERAZINE [Suspect]
     Indication: SCHIZOPHRENIA
     Dosage: 10MG HS PO
     Route: 048
     Dates: start: 20070810, end: 20070820

REACTIONS (11)
  - ASTHENIA [None]
  - DISTURBANCE IN ATTENTION [None]
  - DYSPHAGIA [None]
  - FALL [None]
  - HEAD INJURY [None]
  - IMMOBILE [None]
  - LOSS OF CONSCIOUSNESS [None]
  - TINNITUS [None]
  - URINARY INCONTINENCE [None]
  - URINE OUTPUT INCREASED [None]
  - VISION BLURRED [None]
